FAERS Safety Report 22169284 (Version 2)
Quarter: 2023Q2

REPORT INFORMATION
  Report Type: Spontaneous
  Country: US (occurrence: US)
  Receive Date: 20230404
  Receipt Date: 20230406
  Transmission Date: 20230722
  Serious: No
  Sender: FDA-Public Use
  Company Number: US-002147023-NVSC2023US076035

PATIENT
  Sex: Female

DRUGS (5)
  1. COMBIPATCH [Suspect]
     Active Substance: ESTRADIOL\NORETHINDRONE ACETATE
     Indication: Menopause
     Dosage: 1 DOSAGE FORM, (0.05/0.14 MG) (3-4 DAYS INTERVAL)
     Route: 062
     Dates: start: 202303
  2. COMBIPATCH [Suspect]
     Active Substance: ESTRADIOL\NORETHINDRONE ACETATE
     Indication: Vulvovaginal discomfort
  3. COMBIPATCH [Suspect]
     Active Substance: ESTRADIOL\NORETHINDRONE ACETATE
     Indication: Sleep disorder
  4. ESTRADIOL [Suspect]
     Active Substance: ESTRADIOL
     Indication: Product used for unknown indication
     Dosage: 0.0375 MG
     Route: 062
  5. PROGESTERONE [Concomitant]
     Active Substance: PROGESTERONE
     Indication: Product used for unknown indication
     Dosage: UNK (PILLS)
     Route: 065

REACTIONS (3)
  - Insomnia [Unknown]
  - Drug ineffective [Not Recovered/Not Resolved]
  - Product storage error [Not Recovered/Not Resolved]
